FAERS Safety Report 10521688 (Version 1)
Quarter: 2014Q4

REPORT INFORMATION
  Report Type: Spontaneous
  Country: GB (occurrence: GB)
  Receive Date: 20141016
  Receipt Date: 20141016
  Transmission Date: 20150528
  Serious: Yes (Other)
  Sender: FDA-Public Use
  Company Number: GB-AMGEN-GBRSP2014078463

PATIENT
  Age: 71 Year
  Sex: Female
  Weight: 57.5 kg

DRUGS (7)
  1. CODEINE [Concomitant]
     Active Substance: CODEINE
  2. RINATEC [Concomitant]
     Route: 045
  3. LANSOPRAZOL [Concomitant]
     Active Substance: LANSOPRAZOLE
  4. TOLTERODINE [Concomitant]
     Active Substance: TOLTERODINE
  5. PROLIA [Suspect]
     Active Substance: DENOSUMAB
     Indication: OSTEOPOROSIS
     Dosage: UNK
     Route: 065
     Dates: start: 20140422
  6. CALCIUM CARBONATE. [Concomitant]
     Active Substance: CALCIUM CARBONATE
  7. CARBOMER [Concomitant]
     Active Substance: CARBOMER
     Route: 047

REACTIONS (1)
  - Dyspepsia [Not Recovered/Not Resolved]
